FAERS Safety Report 9899460 (Version 4)
Quarter: 2014Q2

REPORT INFORMATION
  Report Type: Spontaneous
  Country: JP (occurrence: JP)
  Receive Date: 20140214
  Receipt Date: 20140402
  Transmission Date: 20141212
  Serious: Yes (Life-Threatening, Other)
  Sender: FDA-Public Use
  Company Number: JP-009507513-1402JPN006359

PATIENT
  Age: 37 Year
  Sex: Female
  Weight: 76 kg

DRUGS (2)
  1. MARVELON [Suspect]
     Indication: CARDIOVASCULAR EVENT PROPHYLAXIS
     Dosage: DAILY DOSAGE UNKNOWN
     Route: 048
  2. MARVELON [Suspect]
     Dosage: 0.5 DF, UNK
     Route: 048

REACTIONS (2)
  - Ventricular fibrillation [Recovered/Resolved]
  - Cardiac arrest [Recovered/Resolved]
